FAERS Safety Report 23234277 (Version 1)
Quarter: 2023Q4

REPORT INFORMATION
  Report Type: Spontaneous
  Country: US (occurrence: None)
  Receive Date: 20231124
  Receipt Date: 20231124
  Transmission Date: 20240110
  Serious: Yes (Death)
  Sender: FDA-Public Use
  Company Number: None

PATIENT
  Age: 82 Year
  Sex: Male

DRUGS (10)
  1. VELTASSA [Suspect]
     Active Substance: PATIROMER
     Indication: Hyperkalaemia
     Dosage: FREQUENCY : DAILY;?
     Route: 048
     Dates: start: 202012, end: 202311
  2. RANITIDINE [Concomitant]
     Active Substance: RANITIDINE
  3. ALBUTEROL [Concomitant]
     Active Substance: ALBUTEROL
  4. ASPIRIN [Concomitant]
     Active Substance: ASPIRIN
  5. CALCITRIOL [Concomitant]
     Active Substance: CALCITRIOL
  6. FLOMAX [Concomitant]
     Active Substance: TAMSULOSIN HYDROCHLORIDE
  7. LIPITOR [Concomitant]
     Active Substance: ATORVASTATIN CALCIUM
  8. METOPROLOL TARTRATE [Concomitant]
     Active Substance: METOPROLOL TARTRATE
  9. PERCOCET [Concomitant]
     Active Substance: ACETAMINOPHEN\OXYCODONE HYDROCHLORIDE
  10. SPIRIVA [Concomitant]
     Active Substance: TIOTROPIUM BROMIDE MONOHYDRATE

REACTIONS (1)
  - Death [None]

NARRATIVE: CASE EVENT DATE: 20231113
